FAERS Safety Report 6107197-6 (Version None)
Quarter: 2009Q1

REPORT INFORMATION
  Report Type: 
  Country: None (occurrence: None)
  Receive Date: 20090305
  Receipt Date: 20090305
  Transmission Date: 20090719
  Serious: Yes (Other)
  Sender: FDA-Public Use
  Company Number: None

PATIENT
  Sex: Male

DRUGS (9)
  1. LEVETIRACETAM [Suspect]
     Indication: CONVULSION
     Dosage: THREE TIMES PO BID
     Route: 048
     Dates: start: 20070626, end: 20070831
  2. LEVETIRACETAM [Suspect]
     Indication: EPILEPSY
     Dosage: THREE TIMES PO BID
     Route: 048
     Dates: start: 20070626, end: 20070831
  3. LAMICTAL [Concomitant]
  4. NEURONTIN [Concomitant]
  5. TEGRETOL [Concomitant]
  6. KLONOPIN [Concomitant]
  7. MYSOLINE [Concomitant]
  8. DILANTIN [Concomitant]
  9. PHENOBARBITAL TAB [Concomitant]

REACTIONS (3)
  - ABNORMAL BEHAVIOUR [None]
  - AGGRESSION [None]
  - PHYSICAL ASSAULT [None]
